FAERS Safety Report 9340115 (Version 2)
Quarter: 2013Q2

REPORT INFORMATION
  Report Type: Spontaneous
  Country: JP (occurrence: None)
  Receive Date: 20130605
  Receipt Date: 20130619
  Transmission Date: 20140414
  Serious: Yes (Other)
  Sender: FDA-Public Use
  Company Number: 2013-001744

PATIENT
  Age: 58 Year
  Sex: Female

DRUGS (5)
  1. ACTONEL (RISEDRONATE SODIUM) TABLET [Suspect]
     Indication: OSTEOPOROSIS
     Route: 048
     Dates: start: 20130410, end: 20130410
  2. MOHRUS (KETOPROFEN) [Concomitant]
  3. MUCOSTA (REBAMIPIDE) [Concomitant]
  4. METHYCOBAL (MECOBALAMIN) [Concomitant]
  5. LYRICA (PREGABALIN) [Concomitant]

REACTIONS (3)
  - Hyperthermia [None]
  - Malaise [None]
  - Arthralgia [None]
